FAERS Safety Report 17863212 (Version 2)
Quarter: 2020Q2

REPORT INFORMATION
  Report Type: Spontaneous
  Country: US (occurrence: US)
  Receive Date: 20200605
  Receipt Date: 20200616
  Transmission Date: 20200714
  Serious: No
  Sender: FDA-Public Use
  Company Number: US-BIOGEN-2020BI00882003

PATIENT
  Sex: Female

DRUGS (1)
  1. TYSABRI [Suspect]
     Active Substance: NATALIZUMAB
     Indication: MULTIPLE SCLEROSIS
     Route: 065
     Dates: start: 20181220

REACTIONS (7)
  - Fatigue [Unknown]
  - Balance disorder [Unknown]
  - Aphasia [Unknown]
  - Amnesia [Unknown]
  - Fall [Recovered/Resolved]
  - Drug intolerance [Unknown]
  - Nausea [Unknown]
